FAERS Safety Report 24790557 (Version 3)
Quarter: 2025Q1

REPORT INFORMATION
  Report Type: Spontaneous
  Country: JP (occurrence: JP)
  Receive Date: 20241230
  Receipt Date: 20250311
  Transmission Date: 20250409
  Serious: Yes (Hospitalization)
  Sender: DERMAVANT SCIENCES
  Company Number: JP-JT-EVA202402508Dermavant Sciences Inc.

PATIENT
  Age: 89 Year
  Sex: Male

DRUGS (2)
  1. VTAMA [Suspect]
     Active Substance: TAPINAROF
     Indication: Psoriasis
     Route: 003
     Dates: start: 20241118, end: 202412
  2. VTAMA [Suspect]
     Active Substance: TAPINAROF
     Indication: Psoriasis
     Route: 003
     Dates: start: 20241216

REACTIONS (1)
  - Herpes zoster [Recovered/Resolved]

NARRATIVE: CASE EVENT DATE: 20241218
